FAERS Safety Report 4768499-9 (Version None)
Quarter: 2005Q3

REPORT INFORMATION
  Report Type: 
  Country: None (occurrence: None)
  Receive Date: 20050914
  Receipt Date: 20050908
  Transmission Date: 20060218
  Serious: Yes (Hospitalization)
  Sender: FDA-Public Use
  Company Number: US-MERCK-0509USA01035

PATIENT
  Sex: Male

DRUGS (2)
  1. VIOXX [Suspect]
     Indication: SPONDYLITIS
     Route: 048
     Dates: start: 20011101, end: 20030223
  2. VIOXX [Suspect]
     Indication: PAIN
     Route: 048
     Dates: start: 20011101, end: 20030223

REACTIONS (1)
  - MYOCARDIAL INFARCTION [None]
